FAERS Safety Report 7316313-X (Version None)
Quarter: 2011Q1

REPORT INFORMATION
  Report Type: 
  Country: None (occurrence: None)
  Receive Date: 20110225
  Receipt Date: 20101027
  Transmission Date: 20110831
  Serious: Yes (Death, Life-Threatening, Other)
  Sender: FDA-Public Use
  Company Number: JP-ASTRAZENECA-2010SE23026

PATIENT
  Age: 74 Year
  Sex: Female
  Weight: 49 kg

DRUGS (4)
  1. FRESH FROZEN PLASMA [Concomitant]
     Indication: DISSEMINATED INTRAVASCULAR COAGULATION
     Route: 041
     Dates: start: 20100513, end: 20100513
  2. GLYCEOL [Concomitant]
     Indication: CEREBRAL HAEMORRHAGE
     Route: 041
     Dates: start: 20100513, end: 20100513
  3. REMINARON [Concomitant]
     Indication: DISSEMINATED INTRAVASCULAR COAGULATION
     Route: 041
     Dates: start: 20100513, end: 20100514
  4. IRESSA [Suspect]
     Indication: LUNG ADENOCARCINOMA
     Route: 048
     Dates: start: 20100513, end: 20100513

REACTIONS (7)
  - VOMITING [None]
  - LOSS OF CONSCIOUSNESS [None]
  - HEMIPLEGIA [None]
  - COAGULOPATHY [None]
  - DYSPNOEA [None]
  - DISSEMINATED INTRAVASCULAR COAGULATION [None]
  - SUPERIOR VENA CAVA SYNDROME [None]
